FAERS Safety Report 13929696 (Version 1)
Quarter: 2017Q3

REPORT INFORMATION
  Report Type: Spontaneous
  Country: TR (occurrence: TR)
  Receive Date: 20170901
  Receipt Date: 20170901
  Transmission Date: 20171127
  Serious: Yes (Hospitalization, Other)
  Sender: FDA-Public Use
  Company Number: TR-IMPAX LABORATORIES, INC-2017-IPXL-02539

PATIENT
  Age: 15 Year
  Sex: Female
  Weight: 62 kg

DRUGS (9)
  1. SERTRALINE [Interacting]
     Active Substance: SERTRALINE HYDROCHLORIDE
     Indication: TRICHOTILLOMANIA
     Dosage: 100 MG, DAILY
     Route: 065
  2. METHYLPHENIDATE HYDROCHLORIDE. [Suspect]
     Active Substance: METHYLPHENIDATE HYDROCHLORIDE
     Indication: ATTENTION DEFICIT/HYPERACTIVITY DISORDER
     Dosage: 54 MG, DAILY  (OROS)
     Route: 048
  3. METHYLPHENIDATE HYDROCHLORIDE. [Interacting]
     Active Substance: METHYLPHENIDATE HYDROCHLORIDE
     Dosage: 30 MG, DAILY (MODIFIED RELEASE)
     Route: 065
  4. RISPERIDONE. [Suspect]
     Active Substance: RISPERIDONE
     Indication: TRICHOTILLOMANIA
     Dosage: 1 MG, DAILY
     Route: 065
  5. SERTRALINE [Interacting]
     Active Substance: SERTRALINE HYDROCHLORIDE
     Indication: ADJUSTMENT DISORDER WITH DEPRESSED MOOD
     Dosage: 50 MG, DAILY
     Route: 065
  6. METHYLPHENIDATE HYDROCHLORIDE. [Interacting]
     Active Substance: METHYLPHENIDATE HYDROCHLORIDE
     Dosage: 72 MG, DAILY  (OROS)
     Route: 048
  7. METHYLPHENIDATE HYDROCHLORIDE. [Interacting]
     Active Substance: METHYLPHENIDATE HYDROCHLORIDE
     Dosage: 50 MG, DAILY (MODIFIED RELEASE)
     Route: 065
  8. SERTRALINE [Interacting]
     Active Substance: SERTRALINE HYDROCHLORIDE
     Dosage: 50 MG, DAILY
     Route: 065
  9. HALOPERIDOL. [Interacting]
     Active Substance: HALOPERIDOL
     Indication: TRICHOTILLOMANIA
     Dosage: 0.5 MG, DAILY (5 DROPS)
     Route: 065

REACTIONS (8)
  - Product substitution issue [Unknown]
  - Drug interaction [Recovered/Resolved]
  - Increased appetite [Unknown]
  - Galactorrhoea [Recovered/Resolved]
  - Drug ineffective [Unknown]
  - Adjustment disorder with depressed mood [Recovered/Resolved]
  - Headache [Unknown]
  - Trichotillomania [Recovered/Resolved]
